FAERS Safety Report 23114544 (Version 1)
Quarter: 2023Q4

REPORT INFORMATION
  Report Type: Spontaneous
  Country: US (occurrence: None)
  Receive Date: 20231026
  Receipt Date: 20231026
  Transmission Date: 20240110
  Serious: Yes (Other)
  Sender: FDA-Public Use
  Company Number: None

PATIENT
  Age: 71 Year
  Sex: Female
  Weight: 112.5 kg

DRUGS (13)
  1. ENTRESTO [Suspect]
     Active Substance: SACUBITRIL\VALSARTAN
     Indication: Cardiac failure
     Dosage: OTHER QUANTITY : 1 TABLET(S);?FREQUENCY : TWICE A DAY;?
     Route: 048
  2. DEVICE [Concomitant]
     Active Substance: DEVICE
  3. AMIODARONE [Concomitant]
     Active Substance: AMIODARONE
  4. THYROID [Concomitant]
     Active Substance: LEVOTHYROXINE\LIOTHYRONINE
  5. METFORMIN [Concomitant]
     Active Substance: METFORMIN HYDROCHLORIDE
  6. JARDIANCE [Concomitant]
     Active Substance: EMPAGLIFLOZIN
  7. ENTRESTO [Concomitant]
     Active Substance: SACUBITRIL\VALSARTAN
  8. XARELTO [Concomitant]
     Active Substance: RIVAROXABAN
  9. EZETIMIBE [Concomitant]
     Active Substance: EZETIMIBE
  10. VITAMIN D [Concomitant]
     Active Substance: VITAMIN D NOS
  11. CELEXA [Concomitant]
     Active Substance: CITALOPRAM HYDROBROMIDE
  12. Metropolo [Concomitant]
  13. VITAMINS [Concomitant]
     Active Substance: VITAMINS

REACTIONS (3)
  - Pruritus [None]
  - Oral pruritus [None]
  - Eye pruritus [None]

NARRATIVE: CASE EVENT DATE: 20230101
